FAERS Safety Report 22045114 (Version 4)
Quarter: 2023Q1

REPORT INFORMATION
  Report Type: Report from Study
  Country: US (occurrence: US)
  Receive Date: 20230228
  Receipt Date: 20230323
  Transmission Date: 20230417
  Serious: Yes (Other)
  Sender: FDA-Public Use
  Company Number: US-GILEAD-2023-0617133

PATIENT
  Sex: Female
  Weight: 48.526 kg

DRUGS (5)
  1. AMBRISENTAN [Suspect]
     Active Substance: AMBRISENTAN
     Indication: Pulmonary arterial hypertension
     Dosage: 10 MG, QD
     Route: 065
     Dates: start: 20220728
  2. AMBRISENTAN [Suspect]
     Active Substance: AMBRISENTAN
     Indication: Pulmonary hypertension
  3. OPSUMIT [Concomitant]
     Active Substance: MACITENTAN
  4. SILDENAFIL [Concomitant]
     Active Substance: SILDENAFIL
  5. ORENITRAM [Concomitant]
     Active Substance: TREPROSTINIL

REACTIONS (9)
  - Hereditary haemorrhagic telangiectasia [Unknown]
  - Gastrointestinal haemorrhage [Unknown]
  - Gastrointestinal disorder [Unknown]
  - Colitis [Unknown]
  - Ear pain [Not Recovered/Not Resolved]
  - Herpes zoster [Not Recovered/Not Resolved]
  - Neuralgia [Unknown]
  - Pruritus [Unknown]
  - Sinusitis [Recovered/Resolved]
